FAERS Safety Report 22078904 (Version 1)
Quarter: 2023Q1

REPORT INFORMATION
  Report Type: Spontaneous
  Country: SG (occurrence: SG)
  Receive Date: 20230309
  Receipt Date: 20230309
  Transmission Date: 20230418
  Serious: Yes (Other)
  Sender: FDA-Public Use
  Company Number: SG-BoehringerIngelheim-2023-BI-221697

PATIENT
  Age: 60 Year
  Sex: Male

DRUGS (1)
  1. ALTEPLASE [Suspect]
     Active Substance: ALTEPLASE
     Indication: Product used for unknown indication
     Route: 042

REACTIONS (3)
  - Periorbital oedema [Unknown]
  - Petechiae [Unknown]
  - Palatal oedema [Unknown]

NARRATIVE: CASE EVENT DATE: 20230127
